FAERS Safety Report 4429446-2 (Version None)
Quarter: 2004Q3

REPORT INFORMATION
  Report Type: 
  Country: None (occurrence: None)
  Receive Date: 20040816
  Receipt Date: 20040730
  Transmission Date: 20050211
  Serious: Yes (Hospitalization)
  Sender: FDA-Public Use
  Company Number: 200404

PATIENT
  Age: 52 Year
  Sex: Female

DRUGS (1)
  1. AVONEX [Suspect]
     Indication: MULTIPLE SCLEROSIS
     Dosage: 30 MCG QW IM
     Route: 030
     Dates: start: 19981101

REACTIONS (5)
  - BREAST NEOPLASM [None]
  - FALL [None]
  - LEG AMPUTATION [None]
  - SPINAL FUSION ACQUIRED [None]
  - VASCULAR RUPTURE [None]
